FAERS Safety Report 21932430 (Version 11)
Quarter: 2025Q4

REPORT INFORMATION
  Report Type: Spontaneous
  Country: EU (occurrence: EU)
  Receive Date: 20230131
  Receipt Date: 20251020
  Transmission Date: 20260118
  Serious: Yes (Hospitalization, Other)
  Sender: BAYER HEALTHCARE PHARMACEUTICALS INC.
  Company Number: None

PATIENT
  Age: 42 Year
  Sex: Female
  Weight: 55 kg

DRUGS (4)
  1. MIRENA [Suspect]
     Active Substance: LEVONORGESTREL
     Indication: Intrauterine contraception
     Dosage: 20?G/DAY
     Route: 015
     Dates: start: 20211124, end: 20220515
  2. SPIKEVAX [Suspect]
     Active Substance: CX-046684
     Indication: COVID-19 prophylaxis
     Dosage: UNK
     Route: 065
     Dates: start: 20211213
  3. METOCLOPRAMIDE [Suspect]
     Active Substance: METOCLOPRAMIDE
  4. MODERNA COVID-19 VACCINE [Concomitant]
     Active Substance: ELASOMERAN
     Dosage: UNK
     Dates: start: 20211213

REACTIONS (27)
  - Device breakage [Unknown]
  - Idiopathic intracranial hypertension [Recovering/Resolving]
  - Headache [Recovering/Resolving]
  - Abnormal uterine bleeding [None]
  - Hallucination, auditory [Unknown]
  - Insomnia [Not Recovered/Not Resolved]
  - Fibroma [Recovered/Resolved]
  - Vaginal discharge [None]
  - Back pain [Not Recovered/Not Resolved]
  - Cyanosis [Not Recovered/Not Resolved]
  - Chest discomfort [Not Recovered/Not Resolved]
  - Tongue geographic [Not Recovered/Not Resolved]
  - Dyspnoea [Not Recovered/Not Resolved]
  - Hot flush [Not Recovered/Not Resolved]
  - Condition aggravated [Not Recovered/Not Resolved]
  - Vulvitis [Not Recovered/Not Resolved]
  - Heart rate increased [None]
  - Ageusia [Not Recovered/Not Resolved]
  - Tongue geographic [Not Recovered/Not Resolved]
  - Anxiety [Not Recovered/Not Resolved]
  - Feeling hot [Unknown]
  - Gastrooesophageal reflux disease [Not Recovered/Not Resolved]
  - Tinnitus [Not Recovered/Not Resolved]
  - Nasal obstruction [Not Recovered/Not Resolved]
  - Asthma [None]
  - Weight increased [None]
  - Nausea [None]

NARRATIVE: CASE EVENT DATE: 20220101
